FAERS Safety Report 14601217 (Version 3)
Quarter: 2018Q2

REPORT INFORMATION
  Report Type: Report from Study
  Country: None (occurrence: US)
  Receive Date: 20180305
  Receipt Date: 20180405
  Transmission Date: 20180711
  Serious: Yes (Hospitalization, Disabling, Other)
  Sender: FDA-Public Use
  Company Number: US-ABBVIE-18P-163-2274868-00

PATIENT
  Age: 15 Year
  Sex: Male

DRUGS (13)
  1. HUMIRA [Suspect]
     Active Substance: ADALIMUMAB
     Indication: CROHN^S DISEASE
     Route: 058
     Dates: start: 201109, end: 20171129
  2. PANTOPRAZOLE [Concomitant]
     Active Substance: PANTOPRAZOLE
     Indication: CROHN^S DISEASE
     Route: 048
     Dates: start: 20161128
  3. CALCIUM CARBONATE. [Concomitant]
     Active Substance: CALCIUM CARBONATE
     Indication: CROHN^S DISEASE
     Route: 048
     Dates: start: 20131122
  4. STUART PRENATAL [Concomitant]
     Indication: CROHN^S DISEASE
     Route: 048
     Dates: start: 20120402
  5. VITAMIN D3 [Concomitant]
     Active Substance: CHOLECALCIFEROL
     Indication: CROHN^S DISEASE
     Route: 048
     Dates: start: 20121108
  6. HYDROCORTISONE FOAM [Concomitant]
     Indication: POUCHITIS
     Route: 054
     Dates: start: 20170814
  7. MUPIROCIN. [Concomitant]
     Active Substance: MUPIROCIN
     Indication: ANORECTAL DISCOMFORT
     Route: 061
     Dates: start: 20170814
  8. SACCHAROMYCES BOULARDII [Concomitant]
     Active Substance: SACCHAROMYCES CEREVISIAE
     Indication: CROHN^S DISEASE
     Route: 048
     Dates: start: 20160922
  9. PREDNISONE. [Concomitant]
     Active Substance: PREDNISONE
     Indication: CROHN^S DISEASE
     Route: 048
     Dates: start: 20170804, end: 20170810
  10. LYSINE [Concomitant]
     Active Substance: LYSINE
     Indication: CROHN^S DISEASE
     Route: 048
     Dates: start: 20160419
  11. MAGNESIUM SULFATE. [Concomitant]
     Active Substance: MAGNESIUM SULFATE
     Indication: WOUND
     Route: 061
     Dates: start: 20170814
  12. PREDNISONE. [Concomitant]
     Active Substance: PREDNISONE
     Route: 048
     Dates: start: 20170810
  13. NEXIUM [Concomitant]
     Active Substance: ESOMEPRAZOLE MAGNESIUM
     Indication: CROHN^S DISEASE
     Route: 048
     Dates: start: 20120403

REACTIONS (2)
  - Pouchitis [Recovered/Resolved]
  - Abdominal wall abscess [Recovered/Resolved]

NARRATIVE: CASE EVENT DATE: 20180225
